FAERS Safety Report 12655319 (Version 4)
Quarter: 2017Q3

REPORT INFORMATION
  Report Type: Report from Study
  Country: US (occurrence: US)
  Receive Date: 20160816
  Receipt Date: 20170821
  Transmission Date: 20171127
  Serious: No
  Sender: FDA-Public Use
  Company Number: PHEH2016US019996

PATIENT
  Age: 65 Year
  Sex: Female

DRUGS (3)
  1. COSENTYX [Suspect]
     Active Substance: SECUKINUMAB
     Dosage: 300 MG, QW
     Route: 058
     Dates: start: 20160808
  2. COSENTYX [Suspect]
     Active Substance: SECUKINUMAB
     Indication: PSORIATIC ARTHROPATHY
     Dosage: 300 MG, QW
     Route: 058
     Dates: start: 20160711
  3. COSENTYX [Suspect]
     Active Substance: SECUKINUMAB
     Dosage: 300 MG, QW4 (EVERY 4 WEEKS)
     Route: 058

REACTIONS (8)
  - Arthralgia [Unknown]
  - Knuckle pads [Unknown]
  - Psoriasis [Recovering/Resolving]
  - Drug effect decreased [Unknown]
  - Contusion [Unknown]
  - Pain [Unknown]
  - Musculoskeletal stiffness [Unknown]
  - Peripheral swelling [Unknown]

NARRATIVE: CASE EVENT DATE: 20161227
